FAERS Safety Report 8688110 (Version 2)
Quarter: 2013Q4

REPORT INFORMATION
  Report Type: Spontaneous
  Country: BR (occurrence: BR)
  Receive Date: 20120727
  Receipt Date: 20131031
  Transmission Date: 20140711
  Serious: Yes (Death, Other)
  Sender: FDA-Public Use
  Company Number: BR-009507513-1205BRA00065

PATIENT
  Age: 75 Year
  Sex: Female
  Weight: 80 kg

DRUGS (2)
  1. INVANZ [Suspect]
     Indication: CANDIDA INFECTION
     Dates: start: 20120509, end: 20120511
  2. FLUCONAZOLE [Concomitant]

REACTIONS (6)
  - Myocardial infarction [Fatal]
  - Asthenia [Unknown]
  - Confusional state [Recovered/Resolved]
  - Hallucination [Recovered/Resolved]
  - Memory impairment [Recovered/Resolved]
  - Psychotic disorder [Recovered/Resolved]
